FAERS Safety Report 6447234-2 (Version None)
Quarter: 2009Q4

REPORT INFORMATION
  Report Type: 
  Country: None (occurrence: None)
  Receive Date: 20091119
  Receipt Date: 20091105
  Transmission Date: 20100525
  Serious: Yes (Other)
  Sender: FDA-Public Use
  Company Number: PHHY2009DE48841

PATIENT
  Age: 65 Year
  Sex: Male

DRUGS (11)
  1. CARBAMAZEPINE [Suspect]
     Indication: SUNCT SYNDROME
     Dosage: 800 MG
  2. CARBAMAZEPINE [Suspect]
     Dosage: 1000 MG PER DAY
  3. CARBAMAZEPINE [Suspect]
     Dosage: 400 MG
  4. OXCARBAZEPINE [Suspect]
     Indication: SUNCT SYNDROME
     Dosage: 600 MG
  5. GABAPENTIN [Suspect]
     Indication: SUNCT SYNDROME
     Dosage: 3.600 MG
  6. GABAPENTIN [Suspect]
     Dosage: 400 MG
  7. BENPERIDOL [Suspect]
     Indication: SUNCT SYNDROME
     Dosage: 15 MG
  8. METHYLPREDNISOLONE 4MG TAB [Suspect]
     Dosage: 16 MG
  9. PIRITRAMIDE [Concomitant]
  10. MORPHINE [Concomitant]
  11. NSAID'S [Concomitant]

REACTIONS (14)
  - AUTONOMIC NERVOUS SYSTEM IMBALANCE [None]
  - CONJUNCTIVAL HYPERAEMIA [None]
  - CONJUNCTIVAL OEDEMA [None]
  - DEEP VEIN THROMBOSIS [None]
  - DYSAESTHESIA [None]
  - EYELID PTOSIS [None]
  - FATIGUE [None]
  - HEADACHE [None]
  - LACRIMATION INCREASED [None]
  - OCULAR HYPERAEMIA [None]
  - PAIN [None]
  - RHINORRHOEA [None]
  - TREMOR [None]
  - VERTIGO [None]
